FAERS Safety Report 7321468-7 (Version None)
Quarter: 2011Q1

REPORT INFORMATION
  Report Type: 
  Country: None (occurrence: None)
  Receive Date: 20110228
  Receipt Date: 20100611
  Transmission Date: 20110831
  Serious: No
  Sender: FDA-Public Use
  Company Number: US-PFIZER INC-2009252020

PATIENT
  Sex: Male

DRUGS (4)
  1. TOPAMAX [Concomitant]
     Dosage: UNK
     Route: 064
  2. CYMBALTA [Concomitant]
     Dosage: UNK
     Route: 064
  3. GEODON [Suspect]
     Dosage: 40 MG, 1X/DAY
     Route: 064
  4. TRAZODONE [Concomitant]
     Dosage: UNK
     Route: 064

REACTIONS (2)
  - DRUG EXPOSURE DURING PREGNANCY [None]
  - PREMATURE BABY [None]
